FAERS Safety Report 19010870 (Version 1)
Quarter: 2021Q1

REPORT INFORMATION
  Report Type: Spontaneous
  Country: PL (occurrence: PL)
  Receive Date: 20210315
  Receipt Date: 20210315
  Transmission Date: 20210420
  Serious: Yes (Life-Threatening, Hospitalization, Other)
  Sender: FDA-Public Use
  Company Number: PL-GLAXOSMITHKLINE-PL2021060105

PATIENT
  Age: 86 Year
  Sex: Male
  Weight: 88 kg

DRUGS (2)
  1. ZINNAT [Suspect]
     Active Substance: CEFUROXIME
     Indication: PHARYNGITIS
     Dosage: 1000 MG
     Route: 048
     Dates: start: 20200612, end: 20200620
  2. MILURIT [Suspect]
     Active Substance: ALLOPURINOL
     Indication: HYPERURICAEMIA
     Dosage: 600 MG
     Route: 048
     Dates: start: 20200501, end: 20200701

REACTIONS (2)
  - Dermatitis exfoliative generalised [Recovered/Resolved]
  - Acute kidney injury [Recovered/Resolved]

NARRATIVE: CASE EVENT DATE: 20200620
